FAERS Safety Report 23234198 (Version 1)
Quarter: 2023Q4

REPORT INFORMATION
  Report Type: Spontaneous
  Country: US (occurrence: US)
  Receive Date: 20231128
  Receipt Date: 20231128
  Transmission Date: 20240110
  Serious: No
  Sender: FDA-Public Use
  Company Number: US-drreddys-SPO/USA/23/0183174

PATIENT
  Age: 16 Year

DRUGS (2)
  1. ZENATANE [Suspect]
     Active Substance: ISOTRETINOIN
     Indication: Product used for unknown indication
     Dosage: RMA ISSUE DATE: 30 MAY 2023 04:51:40 PM, 07 JULY 2023 04:17:06 PM, 24 AUGUST 2023 10:33:46 AM, 22 SE
  2. ZENATANE [Suspect]
     Active Substance: ISOTRETINOIN
     Dosage: RMA ISSUE DATE: 07 JULY 2023 04:17:06 PM, 22 SEPTEMBER 2023 04:58:23 PM

REACTIONS (1)
  - Therapy cessation [Unknown]
